FAERS Safety Report 25041698 (Version 1)
Quarter: 2025Q1

REPORT INFORMATION
  Report Type: Spontaneous
  Country: US (occurrence: None)
  Receive Date: 20250305
  Receipt Date: 20250305
  Transmission Date: 20250409
  Serious: No
  Sender: FDA-CTU
  Company Number: None

PATIENT
  Age: 60 Year
  Sex: Female
  Weight: 74.25 kg

DRUGS (2)
  1. KEVZARA [Suspect]
     Active Substance: SARILUMAB
     Indication: Polymyalgia rheumatica
     Route: 058
     Dates: start: 20240918
  2. Repatha 140mg PFS [Concomitant]
     Dates: start: 20240917

REACTIONS (3)
  - Vision blurred [None]
  - Neuropathy peripheral [None]
  - Inappropriate schedule of product administration [None]

NARRATIVE: CASE EVENT DATE: 20250304
